FAERS Safety Report 7235742-6 (Version None)
Quarter: 2011Q1

REPORT INFORMATION
  Report Type: 
  Country: None (occurrence: None)
  Receive Date: 20110120
  Receipt Date: 20110117
  Transmission Date: 20110831
  Serious: Yes (Life-Threatening, Hospitalization)
  Sender: FDA-Public Use
  Company Number: FR-EISAI INC-E2020-08375-SPO-FR

PATIENT
  Sex: Male

DRUGS (12)
  1. STALEVO 100 [Concomitant]
     Indication: PARKINSON'S DISEASE
     Route: 048
     Dates: end: 20100604
  2. DEDROGYL [Concomitant]
     Route: 048
     Dates: end: 20100604
  3. XATRAL [Concomitant]
     Route: 048
     Dates: start: 20100604
  4. ARICEPT [Suspect]
     Route: 048
     Dates: end: 20100604
  5. REQUIP [Concomitant]
     Indication: PARKINSON'S DISEASE
     Route: 048
     Dates: end: 20100604
  6. AMLOR [Concomitant]
     Route: 048
     Dates: end: 20100604
  7. AVODART [Concomitant]
     Route: 048
     Dates: end: 20100604
  8. TRIVASTAL [Concomitant]
     Indication: PARKINSON'S DISEASE
     Route: 048
     Dates: end: 20100604
  9. NEXIUM [Concomitant]
     Route: 048
  10. FLECAINE [Suspect]
     Dosage: UNKNOWN
     Route: 048
     Dates: start: 20100528, end: 20100604
  11. GLIMEPIRIDE [Concomitant]
     Route: 048
     Dates: end: 20100604
  12. STABLON [Concomitant]
     Indication: DEPRESSION
     Route: 048

REACTIONS (2)
  - COMA [None]
  - BRADYCARDIA [None]
